FAERS Safety Report 9964341 (Version 2)
Quarter: 2014Q1

REPORT INFORMATION
  Report Type: Spontaneous
  Country: US (occurrence: US)
  Receive Date: 20140305
  Receipt Date: 20140313
  Transmission Date: 20141002
  Serious: Yes (Other)
  Sender: FDA-Public Use
  Company Number: CHPA2014US003107

PATIENT
  Age: 82 Year
  Sex: Female

DRUGS (1)
  1. EX-LAX MAX STR LAX PILLS SENNA [Suspect]
     Indication: CONSTIPATION
     Dosage: 1 OR 2 DAILY
     Route: 048

REACTIONS (2)
  - Pleurisy [Unknown]
  - Underdose [Unknown]
